FAERS Safety Report 9416802 (Version 1)
Quarter: 2013Q3

REPORT INFORMATION
  Report Type: Spontaneous
  Country: US (occurrence: US)
  Receive Date: 20130724
  Receipt Date: 20130724
  Transmission Date: 20140515
  Serious: No
  Sender: FDA-Public Use
  Company Number: US-GALDERMA-US13000629

PATIENT
  Age: 64 Year
  Sex: Male
  Weight: 93 kg

DRUGS (5)
  1. ORACEA (DOXYCYCLINE, USP) CAPSULES 40 MG [Suspect]
     Indication: ROSACEA
     Dates: start: 201205, end: 201205
  2. ORACEA (DOXYCYCLINE, USP) CAPSULES 40 MG [Suspect]
     Dates: start: 20130205, end: 20130219
  3. SIMVASTATIN [Concomitant]
     Route: 048
  4. PREVACID [Concomitant]
     Indication: GASTROOESOPHAGEAL REFLUX DISEASE
     Route: 048
  5. MULTIVITAMINS [Concomitant]
     Route: 048

REACTIONS (1)
  - Arthralgia [Recovering/Resolving]
